FAERS Safety Report 4767454-2 (Version None)
Quarter: 2005Q3

REPORT INFORMATION
  Report Type: 
  Country: None (occurrence: None)
  Receive Date: 20050913
  Receipt Date: 20050603
  Transmission Date: 20060218
  Serious: Yes (Hospitalization)
  Sender: FDA-Public Use
  Company Number: US-MERCK-0506USA00847

PATIENT
  Age: 65 Year
  Sex: Male
  Weight: 80 kg

DRUGS (5)
  1. VIOXX [Suspect]
     Indication: ARTHRALGIA
     Route: 048
     Dates: start: 20010701, end: 20040930
  2. ZOLOFT [Concomitant]
     Indication: DEPRESSION
     Route: 065
     Dates: start: 19990101, end: 20040401
  3. FLOMAX (MORNIFLUMATE) [Concomitant]
     Indication: URINARY RETENTION
     Route: 065
  4. THEOPHYLLINE [Concomitant]
     Indication: DYSPNOEA
     Route: 065
  5. AVODART [Concomitant]
     Indication: PROSTATIC DISORDER
     Route: 065

REACTIONS (7)
  - ALCOHOLISM [None]
  - ANGINA PECTORIS [None]
  - AORTIC ANEURYSM [None]
  - BLOOD CHOLESTEROL INCREASED [None]
  - CORONARY ARTERY DISEASE [None]
  - DEPRESSION [None]
  - MYOCARDIAL INFARCTION [None]
